FAERS Safety Report 5328348-7 (Version None)
Quarter: 2007Q2

REPORT INFORMATION
  Report Type: 
  Country: None (occurrence: None)
  Receive Date: 20070515
  Receipt Date: 20070515
  Transmission Date: 20071010
  Serious: Yes (Other)
  Sender: FDA-Public Use
  Company Number: None

PATIENT
  Sex: Female
  Weight: 63.9572 kg

DRUGS (1)
  1. NIFEDIPINE [Suspect]
     Indication: PREMATURE LABOUR
     Dosage: 1 PILL 4 HOURS PO
     Route: 048
     Dates: start: 20070513, end: 20070514

REACTIONS (8)
  - DIARRHOEA [None]
  - DYSPEPSIA [None]
  - HAEMORRHOIDS [None]
  - PRURITUS [None]
  - RASH [None]
  - REACTION TO COLOURING [None]
  - RETCHING [None]
  - THROAT IRRITATION [None]
